FAERS Safety Report 25785215 (Version 1)
Quarter: 2025Q3

REPORT INFORMATION
  Report Type: Spontaneous
  Country: CA (occurrence: CA)
  Receive Date: 20250910
  Receipt Date: 20250910
  Transmission Date: 20251021
  Serious: Yes (Hospitalization, Other)
  Sender: TEVA
  Company Number: CA-TEVA-VS-3370760

PATIENT
  Age: 67 Year
  Sex: Male

DRUGS (1)
  1. SULFAMETHOXAZOLE\TRIMETHOPRIM [Suspect]
     Active Substance: SULFAMETHOXAZOLE\TRIMETHOPRIM
     Indication: Whipple^s disease
     Route: 048

REACTIONS (1)
  - Immune reconstitution inflammatory syndrome [Recovered/Resolved]
